FAERS Safety Report 7048320-9 (Version None)
Quarter: 2010Q4

REPORT INFORMATION
  Report Type: 
  Country: None (occurrence: None)
  Receive Date: 20101015
  Receipt Date: 20101008
  Transmission Date: 20110411
  Serious: Yes (Hospitalization)
  Sender: FDA-Public Use
  Company Number: FR-B.I. PHARMACEUTICALS,INC./RIDGEFIELD-2010-DE-05518GD

PATIENT
  Age: 60 Year
  Sex: Male

DRUGS (7)
  1. ASPIRIN AND DIPYRIDAMOLE [Suspect]
     Indication: CEREBROVASCULAR ACCIDENT PROPHYLAXIS
     Dosage: DIPYRIDAMOLE 8 G PLUS ACETYLSALICYLIC ACID 1 G
     Route: 048
  2. CYAMEMAZINE [Suspect]
     Dosage: 75 MG
  3. AMITRIPTYLINE HCL [Suspect]
  4. VALPROMIDE [Concomitant]
     Dosage: 900 MG
  5. RIVASTIGMINE [Concomitant]
  6. AMISULPRIDE [Concomitant]
     Dosage: 400 MG
  7. SERTRALINE HYDROCHLORIDE [Concomitant]

REACTIONS (7)
  - CARDIOGENIC SHOCK [None]
  - DRUG INTERACTION [None]
  - DRUG TOXICITY [None]
  - INTENTIONAL OVERDOSE [None]
  - MYOCARDIAL INFARCTION [None]
  - RASH [None]
  - SUICIDE ATTEMPT [None]
